FAERS Safety Report 5479373-7 (Version None)
Quarter: 2007Q4

REPORT INFORMATION
  Report Type: 
  Country: None (occurrence: None)
  Receive Date: 20071003
  Receipt Date: 20071003
  Transmission Date: 20080405
  Serious: No
  Sender: FDA-Public Use
  Company Number: None

PATIENT

DRUGS (2)
  1. FOSAMAX [Suspect]
     Dates: start: 20060101, end: 20060501
  2. ACTONEL [Suspect]

REACTIONS (17)
  - ARTHRALGIA [None]
  - BLOOD CHOLESTEROL INCREASED [None]
  - BONE PAIN [None]
  - CHEST PAIN [None]
  - DYSPHONIA [None]
  - FATIGUE [None]
  - GASTROINTESTINAL PAIN [None]
  - HYPOAESTHESIA [None]
  - ILIUM FRACTURE [None]
  - INFLUENZA LIKE ILLNESS [None]
  - JOINT SWELLING [None]
  - MUSCLE SPASMS [None]
  - NASAL DRYNESS [None]
  - PAIN IN EXTREMITY [None]
  - PARAESTHESIA [None]
  - VISION BLURRED [None]
  - VOCAL CORD DISORDER [None]
